FAERS Safety Report 16768655 (Version 3)
Quarter: 2019Q3

REPORT INFORMATION
  Report Type: Report from Study
  Country: CA (occurrence: CA)
  Receive Date: 20190903
  Receipt Date: 20190917
  Transmission Date: 20191005
  Serious: Yes (Other)
  Sender: FDA-Public Use
  Company Number: CA-GLAXOSMITHKLINE-CA2019AMR157166

PATIENT
  Sex: Female

DRUGS (2)
  1. PULMICORT TURBUHALER [Suspect]
     Active Substance: BUDESONIDE
     Indication: PRODUCT USED FOR UNKNOWN INDICATION
     Dosage: UNK
  2. MEPOLIZUMAB [Suspect]
     Active Substance: MEPOLIZUMAB
     Indication: ASTHMA
     Dosage: 100 MG, Z (MONTHLY)
     Route: 042
     Dates: start: 20180418

REACTIONS (11)
  - Aphonia [Recovering/Resolving]
  - Cold sweat [Recovering/Resolving]
  - Asthma [Not Recovered/Not Resolved]
  - Yawning [Recovering/Resolving]
  - Head discomfort [Recovering/Resolving]
  - Exercise lack of [Unknown]
  - General physical health deterioration [Unknown]
  - Dizziness [Recovering/Resolving]
  - Limb discomfort [Recovering/Resolving]
  - Syncope [Recovering/Resolving]
  - Obstructive airways disorder [Unknown]
